FAERS Safety Report 5068878-9 (Version None)
Quarter: 2006Q3

REPORT INFORMATION
  Report Type: 
  Country: None (occurrence: None)
  Receive Date: 20060802
  Receipt Date: 20060517
  Transmission Date: 20061208
  Serious: Yes (Hospitalization)
  Sender: FDA-Public Use
  Company Number: US-BRISTOL-MYERS SQUIBB COMPANY-13379896

PATIENT
  Age: 86 Year
  Sex: Male
  Weight: 68 kg

DRUGS (4)
  1. COUMADIN [Suspect]
     Route: 048
     Dates: start: 20060512, end: 20060512
  2. LOVENOX [Concomitant]
     Dosage: BEGAN LOVENOX INJECTIONS POST-SURGERY
     Route: 051
     Dates: start: 20060501
  3. NORVASC [Concomitant]
     Dosage: FOR 10-12 YEARS
  4. ZANTAC [Concomitant]
     Dosage: FOR 6 YEARS

REACTIONS (2)
  - HAEMORRHAGE [None]
  - INTERNATIONAL NORMALISED RATIO INCREASED [None]
